FAERS Safety Report 21990738 (Version 13)
Quarter: 2023Q4

REPORT INFORMATION
  Report Type: Report from Study
  Country: US (occurrence: US)
  Receive Date: 20230214
  Receipt Date: 20231206
  Transmission Date: 20240109
  Serious: Yes (Hospitalization, Other)
  Sender: FDA-Public Use
  Company Number: US-TAKEDA-2023TUS014199

PATIENT
  Age: 36 Year
  Sex: Female
  Weight: 70 kg

DRUGS (6)
  1. LANADELUMAB [Suspect]
     Active Substance: LANADELUMAB
     Indication: Immune system disorder
     Dosage: 300 MILLIGRAM, Q2WEEKS
     Route: 058
     Dates: start: 20230117
  2. LANADELUMAB [Suspect]
     Active Substance: LANADELUMAB
     Indication: Prophylaxis
     Dosage: 300 MILLIGRAM, Q2WEEKS
     Route: 058
     Dates: start: 20230118
  3. LANADELUMAB [Suspect]
     Active Substance: LANADELUMAB
     Dosage: 300 MILLIGRAM, Q2WEEKS
     Route: 058
     Dates: start: 202301
  4. LANADELUMAB [Suspect]
     Active Substance: LANADELUMAB
     Dosage: 300 MILLIGRAM
     Route: 058
  5. TYLENOL [Suspect]
     Active Substance: ACETAMINOPHEN
     Indication: Product used for unknown indication
     Dosage: UNK
     Route: 065
  6. HAEGARDA [Suspect]
     Active Substance: HUMAN C1-ESTERASE INHIBITOR
     Indication: Prophylaxis
     Dosage: UNK
     Route: 065

REACTIONS (13)
  - Pneumonia [Unknown]
  - Vascular device infection [Unknown]
  - Contrast media allergy [Unknown]
  - Drug hypersensitivity [Unknown]
  - Infection [Unknown]
  - Catheter site haemorrhage [Unknown]
  - Anaphylactic reaction [Unknown]
  - Hereditary angioedema [Recovered/Resolved]
  - Weight increased [Unknown]
  - Multiple allergies [Unknown]
  - Migraine [Unknown]
  - Headache [Unknown]
  - Product dose omission issue [Unknown]

NARRATIVE: CASE EVENT DATE: 20230117
